FAERS Safety Report 7041477-5 (Version None)
Quarter: 2010Q4

REPORT INFORMATION
  Report Type: 
  Country: None (occurrence: None)
  Receive Date: 20101013
  Receipt Date: 20091026
  Transmission Date: 20110411
  Serious: No
  Sender: FDA-Public Use
  Company Number: US-ASTRAZENECA-2009SE22924

PATIENT
  Age: 11544 Day
  Sex: Female
  Weight: 63.5 kg

DRUGS (2)
  1. SYMBICORT [Suspect]
     Indication: INFLUENZA
     Dosage: 320 UG BID
     Route: 055
     Dates: start: 20091024
  2. TAMIFLU [Concomitant]

REACTIONS (1)
  - DYSPNOEA [None]
